FAERS Safety Report 11556770 (Version 1)
Quarter: 2015Q3

REPORT INFORMATION
  Report Type: Spontaneous
  Country: DK (occurrence: GB)
  Receive Date: 20150925
  Receipt Date: 20150925
  Transmission Date: 20151125
  Serious: Yes (Life-Threatening, Hospitalization, Disabling, Other)
  Sender: FDA-Public Use
  Company Number: GB-FRI-1000079669

PATIENT
  Age: 32 Year
  Sex: Female
  Weight: 50.8 kg

DRUGS (10)
  1. CITALOPRAM [Suspect]
     Active Substance: CITALOPRAM HYDROBROMIDE
     Indication: DEPRESSION
     Dosage: 20 MG
     Route: 048
     Dates: start: 20150101, end: 20150401
  2. TRAMADOL. [Concomitant]
     Active Substance: TRAMADOL
     Indication: PRODUCT USED FOR UNKNOWN INDICATION
     Route: 065
  3. DIAZEPAM. [Suspect]
     Active Substance: DIAZEPAM
     Indication: ANXIETY
     Dosage: 30 MG
     Route: 048
     Dates: start: 20120101, end: 20150830
  4. ZOLPIDEM [Concomitant]
     Active Substance: ZOLPIDEM\ZOLPIDEM TARTRATE
     Indication: PRODUCT USED FOR UNKNOWN INDICATION
     Route: 065
  5. DIAZEPAM. [Suspect]
     Active Substance: DIAZEPAM
     Indication: DEPRESSION
  6. CYCLIZINE [Concomitant]
     Active Substance: CYCLIZINE
     Indication: PRODUCT USED FOR UNKNOWN INDICATION
     Route: 065
  7. PROZAC [Suspect]
     Active Substance: FLUOXETINE HYDROCHLORIDE
     Indication: PRODUCT USED FOR UNKNOWN INDICATION
     Dosage: 40 MG
     Route: 048
     Dates: start: 20120101, end: 20141231
  8. TEMAZEPAM. [Suspect]
     Active Substance: TEMAZEPAM
     Indication: ANXIETY
     Dosage: 40 MG
     Route: 048
     Dates: start: 20120101, end: 20150830
  9. CODEINE PHOSPHATE [Concomitant]
     Active Substance: CODEINE PHOSPHATE
     Indication: PRODUCT USED FOR UNKNOWN INDICATION
     Route: 065
  10. ZOPICLONE [Concomitant]
     Active Substance: ZOPICLONE
     Indication: PRODUCT USED FOR UNKNOWN INDICATION
     Route: 065

REACTIONS (20)
  - Intentional self-injury [Recovering/Resolving]
  - Acute psychosis [Recovered/Resolved with Sequelae]
  - Hyperhidrosis [Unknown]
  - Weight increased [Unknown]
  - Drug withdrawal syndrome [Not Recovered/Not Resolved]
  - Depression suicidal [Not Recovered/Not Resolved]
  - Amnesia [Not Recovered/Not Resolved]
  - Overdose [Unknown]
  - Personality change [Unknown]
  - Delusion [Unknown]
  - Mood altered [Not Recovered/Not Resolved]
  - Mood swings [Not Recovered/Not Resolved]
  - Suicidal behaviour [Recovering/Resolving]
  - Agoraphobia [Not Recovered/Not Resolved]
  - Mental impairment [Unknown]
  - Restlessness [Unknown]
  - Sleep disorder [Unknown]
  - Pregnancy [Not Recovered/Not Resolved]
  - Aggression [Recovered/Resolved with Sequelae]
  - Anxiety disorder [Not Recovered/Not Resolved]
